FAERS Safety Report 13135666 (Version 1)
Quarter: 2017Q1

REPORT INFORMATION
  Report Type: Report from Study
  Country: BR (occurrence: BR)
  Receive Date: 20170120
  Receipt Date: 20170120
  Transmission Date: 20170428
  Serious: Yes (Other)
  Sender: FDA-Public Use
  Company Number: PHHY2017BR006160

PATIENT
  Sex: Female
  Weight: 47 kg

DRUGS (6)
  1. HYALOGEL [Concomitant]
     Active Substance: HYALURONATE SODIUM
     Indication: DRY EYE
     Dosage: MANY TIMES A DAY (6 YEARS AGO)
     Route: 048
  2. LINSEED OIL [Concomitant]
     Active Substance: LINSEED OIL
     Indication: DRY EYE
     Dosage: 6 YEARS AGO
     Route: 048
  3. DIMETHYLPOLYSILOXANE [Concomitant]
     Indication: EYE DISORDER
     Dosage: USES FOR 6 YEAR
     Route: 065
  4. ULTIBRO BREEZHALER [Suspect]
     Active Substance: GLYCOPYRRONIUM\INDACATEROL
     Indication: CHRONIC OBSTRUCTIVE PULMONARY DISEASE
     Dosage: 1 DF (GLYCOPYRRONIUM BROMIDE 50 UG/INDACATEROL 110 UG), QD
     Route: 055
  5. CLOPIDOGREL [Concomitant]
     Active Substance: CLOPIDOGREL BISULFATE
     Indication: ARTERIOSCLEROSIS
     Dosage: 1 DF, QD
     Route: 065
  6. SINVASTATINA [Concomitant]
     Active Substance: SIMVASTATIN
     Indication: BLOOD CHOLESTEROL ABNORMAL
     Dosage: 1 DF, QD (6 MONTHS AGO)
     Route: 065

REACTIONS (2)
  - Cough [Not Recovered/Not Resolved]
  - Drug intolerance [Unknown]
